FAERS Safety Report 16917962 (Version 7)
Quarter: 2025Q1

REPORT INFORMATION
  Report Type: Report from Study
  Country: US (occurrence: US)
  Receive Date: 20191015
  Receipt Date: 20250306
  Transmission Date: 20250409
  Serious: Yes (Life-Threatening, Other)
  Sender: TAKEDA
  Company Number: US-SHIRE-US201932900

PATIENT
  Age: 73 Year
  Sex: Female

DRUGS (3)
  1. PARATHYROID HORMONE [Suspect]
     Active Substance: PARATHYROID HORMONE
     Indication: Post procedural hypoparathyroidism
     Dosage: 100 MICROGRAM, QD
     Dates: start: 20150514
  2. PARATHYROID HORMONE [Suspect]
     Active Substance: PARATHYROID HORMONE
     Indication: Hypoparathyroidism
     Dosage: 100 MICROGRAM, QD
     Dates: start: 201505
  3. PARATHYROID HORMONE [Suspect]
     Active Substance: PARATHYROID HORMONE
     Dosage: UNK UNK, QD
     Dates: start: 201505

REACTIONS (10)
  - Hypocalcaemia [Unknown]
  - Atrial fibrillation [Unknown]
  - Brain fog [Recovered/Resolved]
  - Pain [Recovered/Resolved]
  - Fear [Unknown]
  - Recalled product [Unknown]
  - Product dose omission issue [Recovered/Resolved]
  - Device defective [Unknown]
  - Muscle spasms [Unknown]
  - Somnolence [Recovered/Resolved]

NARRATIVE: CASE EVENT DATE: 20220304
